FAERS Safety Report 6804177-X (Version None)
Quarter: 2010Q2

REPORT INFORMATION
  Report Type: 
  Country: None (occurrence: None)
  Receive Date: 20100628
  Receipt Date: 20070117
  Transmission Date: 20101027
  Serious: Yes (Other)
  Sender: FDA-Public Use
  Company Number: US-PFIZER INC-2007005091

PATIENT
  Sex: Female
  Weight: 113.4 kg

DRUGS (6)
  1. SUTENT [Suspect]
     Indication: GASTROINTESTINAL STROMAL TUMOUR
     Route: 048
     Dates: start: 20061123
  2. METFORMIN HCL [Concomitant]
  3. AMARYL [Concomitant]
  4. CRESTOR [Concomitant]
  5. ALPHAGAN [Concomitant]
  6. LOTREL [Concomitant]
     Dates: start: 20061212

REACTIONS (5)
  - BLOOD UREA INCREASED [None]
  - GLOBULINS DECREASED [None]
  - PRURITUS [None]
  - RASH [None]
  - RASH GENERALISED [None]
